FAERS Safety Report 8367266-7 (Version None)
Quarter: 2012Q2

REPORT INFORMATION
  Report Type: 
  Country: None (occurrence: None)
  Receive Date: 20120517
  Receipt Date: 20120508
  Transmission Date: 20120825
  Serious: Yes (Other)
  Sender: FDA-Public Use
  Company Number: BR-BRISTOL-MYERS SQUIBB COMPANY-16322356

PATIENT
  Age: 59 Year
  Sex: Female
  Weight: 75 kg

DRUGS (5)
  1. SIMVASTATIN [Concomitant]
  2. ONGLYZA [Suspect]
     Indication: DIABETES MELLITUS
     Dosage: DOSE INCREASED TO 5MG/D SINCE DEC2011
     Route: 048
     Dates: start: 20110201
  3. METFORMIN HCL [Suspect]
     Dosage: DOSE INCREASED TO 850 MG SINCE DEC2011; INTERRUPTED ON 03JAN2012,500MG,750MG,INCREASED TO 1700/D
  4. METFORMIN HYDROCHLORIDE [Suspect]
     Indication: HEPATIC STEATOSIS
     Dosage: DRUG DISCONTINUED
     Route: 048
     Dates: start: 20110201
  5. BENICAR [Concomitant]

REACTIONS (3)
  - BLOOD GLUCOSE INCREASED [None]
  - HEPATIC STEATOSIS [None]
  - NAUSEA [None]
